FAERS Safety Report 9495302 (Version 1)
Quarter: 2013Q3

REPORT INFORMATION
  Report Type: Spontaneous
  Country: AU (occurrence: None)
  Receive Date: 20130828
  Receipt Date: 20130828
  Transmission Date: 20140515
  Serious: Yes (Death, Other)
  Sender: FDA-Public Use
  Company Number: 008-20785-13081803

PATIENT
  Age: 67 Year
  Sex: Female

DRUGS (3)
  1. THALIDOMIDE [Suspect]
     Indication: PLASMA CELL MYELOMA
     Route: 048
  2. CYCLOPHOSPHAMIDE (CYCLOPHOSPHAMIDE) [Concomitant]
  3. PREDNISOLONE (PREDNISOLONE) [Concomitant]

REACTIONS (6)
  - Plasma cell myeloma [None]
  - Cytomegalovirus chorioretinitis [None]
  - Febrile neutropenia [None]
  - Vitreous floaters [None]
  - Visual acuity reduced [None]
  - Toxicity to various agents [None]
